FAERS Safety Report 10745291 (Version 1)
Quarter: 2015Q1

REPORT INFORMATION
  Report Type: Spontaneous
  Country: GB (occurrence: GB)
  Receive Date: 20150128
  Receipt Date: 20150128
  Transmission Date: 20150721
  Serious: Yes (Hospitalization, Disabling, Other)
  Sender: FDA-Public Use
  Company Number: GB-ELI_LILLY_AND_COMPANY-GB201501005732

PATIENT
  Age: 54 Year
  Sex: Female
  Weight: 60 kg

DRUGS (5)
  1. STARFLOWER OIL                     /01354602/ [Concomitant]
     Dosage: UNK
  2. DULOXETINE HYDROCHLORIDE. [Suspect]
     Active Substance: DULOXETINE HYDROCHLORIDE
     Indication: FIBROMYALGIA
     Dosage: 60 MG, UNKNOWN
     Route: 048
     Dates: start: 20141022, end: 20141216
  3. IBUPROFEN. [Concomitant]
     Active Substance: IBUPROFEN
     Dosage: UNK
  4. MAGNESIUM MALATE [Concomitant]
     Dosage: UNK
  5. TRAMADOL [Concomitant]
     Active Substance: TRAMADOL
     Dosage: UNK

REACTIONS (20)
  - Migraine [Recovering/Resolving]
  - Muscle spasms [Recovering/Resolving]
  - Neck pain [Recovering/Resolving]
  - Paraesthesia [Recovering/Resolving]
  - Paralysis [Recovered/Resolved]
  - Chest pain [Recovering/Resolving]
  - Myoclonus [Recovering/Resolving]
  - Syncope [Recovering/Resolving]
  - Seizure [Recovering/Resolving]
  - Tachypnoea [Recovering/Resolving]
  - Dyspnoea [Recovering/Resolving]
  - Hypertension [Recovering/Resolving]
  - Tremor [Recovering/Resolving]
  - Postural orthostatic tachycardia syndrome [Recovering/Resolving]
  - Indifference [Recovering/Resolving]
  - Feeling abnormal [Recovering/Resolving]
  - Lethargy [Recovering/Resolving]
  - Tachycardia [Recovering/Resolving]
  - Nausea [Recovering/Resolving]
  - Decreased appetite [Recovering/Resolving]

NARRATIVE: CASE EVENT DATE: 20141216
